FAERS Safety Report 15855553 (Version 6)
Quarter: 2019Q3

REPORT INFORMATION
  Report Type: Report from Study
  Country: US (occurrence: US)
  Receive Date: 20190122
  Receipt Date: 20190808
  Transmission Date: 20191004
  Serious: No
  Sender: FDA-Public Use
  Company Number: PHEH2019US002706

PATIENT
  Sex: Male

DRUGS (5)
  1. VOTRIENT [Suspect]
     Active Substance: PAZOPANIB HYDROCHLORIDE
     Indication: PRODUCT USED FOR UNKNOWN INDICATION
     Route: 065
  2. AFINITOR [Suspect]
     Active Substance: EVEROLIMUS
     Indication: RENAL CANCER
     Dosage: UNK
     Route: 065
  3. ZOMETA [Suspect]
     Active Substance: ZOLEDRONIC ACID
     Indication: PRODUCT USED FOR UNKNOWN INDICATION
     Route: 065
  4. LENVATINIB [Suspect]
     Active Substance: LENVATINIB
     Indication: RENAL CANCER
     Dosage: 18 MG, QD
     Route: 048
     Dates: start: 20190107
  5. LENVATINIB [Suspect]
     Active Substance: LENVATINIB
     Dosage: 18 MG, QD
     Route: 048

REACTIONS (13)
  - Blood pressure increased [Unknown]
  - Constipation [Not Recovered/Not Resolved]
  - Blood iron decreased [Unknown]
  - Dysstasia [Not Recovered/Not Resolved]
  - Abdominal pain [Not Recovered/Not Resolved]
  - Protein total increased [Unknown]
  - Oral pain [Not Recovered/Not Resolved]
  - Swelling [Unknown]
  - Diarrhoea [Unknown]
  - Hypertension [Recovering/Resolving]
  - Nasal congestion [Not Recovered/Not Resolved]
  - Dry skin [Not Recovered/Not Resolved]
  - Fatigue [Not Recovered/Not Resolved]
